FAERS Safety Report 6515728-7 (Version None)
Quarter: 2009Q4

REPORT INFORMATION
  Report Type: 
  Country: None (occurrence: None)
  Receive Date: 20091211
  Receipt Date: 20081125
  Transmission Date: 20100525
  Serious: Yes (Other)
  Sender: FDA-Public Use
  Company Number: 599579

PATIENT
  Age: 43 Year
  Sex: Male
  Weight: 106.5953 kg

DRUGS (6)
  1. VALIUM [Suspect]
     Indication: ANXIETY
     Dosage: 2 PER DAY ORAL
     Route: 048
     Dates: start: 20080304, end: 20080304
  2. DECONGESTANT (DECONGESTANT NOS) [Suspect]
     Indication: DRUG USE FOR UNKNOWN INDICATION
  3. ALLEGRA [Concomitant]
  4. OMEPRAZOLE [Concomitant]
  5. MULTIVITAMIN [Concomitant]
  6. VITAMIN NOS (VITAMIN NOS) [Concomitant]

REACTIONS (2)
  - AGITATION [None]
  - ANXIETY [None]
